FAERS Safety Report 7655628-2 (Version None)
Quarter: 2011Q3

REPORT INFORMATION
  Report Type: 
  Country: None (occurrence: None)
  Receive Date: 20110729
  Receipt Date: 20110718
  Transmission Date: 20111222
  Serious: Yes (Life-Threatening, Hospitalization, Other)
  Sender: FDA-Public Use
  Company Number: 2011-00783

PATIENT
  Age: 74 Year
  Sex: Male

DRUGS (9)
  1. LANSOPRAZOLE [Concomitant]
  2. ACETAMINOPHEN [Concomitant]
  3. CLOPIDOGREL (CLOPIDOGREL HYDROGEN SULPHATE) [Concomitant]
  4. LISINOPRIL [Suspect]
     Indication: HYPERTENSION
     Dosage: 10 MG (10 MG, 1 IN 1 D), ORAL
     Route: 048
     Dates: start: 20110602, end: 20110618
  5. ASCORBIC ACID [Concomitant]
  6. METFORMIN HCL [Concomitant]
  7. IRON (FERROUS SULPHATE) [Concomitant]
  8. LITHIUM CARBONATE [Concomitant]
  9. SIMVASTATIN [Concomitant]

REACTIONS (3)
  - TOXICITY TO VARIOUS AGENTS [None]
  - BLOOD POTASSIUM INCREASED [None]
  - RENAL FAILURE ACUTE [None]
